FAERS Safety Report 24111864 (Version 1)
Quarter: 2024Q3

REPORT INFORMATION
  Report Type: Spontaneous
  Country: FR (occurrence: FR)
  Receive Date: 20240718
  Receipt Date: 20240718
  Transmission Date: 20241016
  Serious: Yes (Hospitalization, Other)
  Sender: BRISTOL MYERS SQUIBB
  Company Number: None

PATIENT
  Age: 73 Year
  Sex: Female

DRUGS (3)
  1. ELIQUIS [Suspect]
     Active Substance: APIXABAN
     Indication: Thrombosis prophylaxis
     Route: 048
     Dates: start: 20240522, end: 20240522
  2. LERCANIDIPINE [Suspect]
     Active Substance: LERCANIDIPINE
     Indication: Hypertension
     Route: 048
     Dates: start: 20240522, end: 20240522
  3. SOTALOL [Suspect]
     Active Substance: SOTALOL
     Indication: Arrhythmia
     Route: 048
     Dates: start: 20240522, end: 20240522

REACTIONS (4)
  - Dizziness [Recovered/Resolved]
  - Medication error [Recovered/Resolved]
  - Hypokalaemia [Recovered/Resolved]
  - Hypotension [Recovered/Resolved]

NARRATIVE: CASE EVENT DATE: 20240522
